FAERS Safety Report 17044407 (Version 1)
Quarter: 2019Q4

REPORT INFORMATION
  Report Type: Spontaneous
  Country: US (occurrence: US)
  Receive Date: 20191116
  Receipt Date: 20191116
  Transmission Date: 20200122
  Serious: Yes (Death)
  Sender: FDA-Public Use
  Company Number: None

PATIENT
  Age: 28 Year
  Sex: Female
  Weight: 85.5 kg

DRUGS (4)
  1. FLEXERIL [Concomitant]
     Active Substance: CYCLOBENZAPRINE HYDROCHLORIDE
  2. XYREM [Suspect]
     Active Substance: SODIUM OXYBATE
     Indication: CATAPLEXY
     Route: 048
     Dates: start: 20190523, end: 20190731
  3. DEXOAMPHETIME/AMPHETAMINE [Concomitant]
  4. XYREM [Suspect]
     Active Substance: SODIUM OXYBATE
     Indication: NARCOLEPSY
     Route: 048
     Dates: start: 20190523, end: 20190731

REACTIONS (11)
  - Agitation [None]
  - Mydriasis [None]
  - Vomiting [None]
  - Mental disorder [None]
  - Hypertension [None]
  - Delusion [None]
  - Confusional state [None]
  - Ill-defined disorder [None]
  - Cognitive disorder [None]
  - Euphoric mood [None]
  - Completed suicide [None]

NARRATIVE: CASE EVENT DATE: 20190731
